FAERS Safety Report 9854295 (Version 2)
Quarter: 2014Q2

REPORT INFORMATION
  Report Type: Report from Study
  Country: US (occurrence: US)
  Receive Date: 20140130
  Receipt Date: 20140516
  Transmission Date: 20141212
  Serious: Yes (Other)
  Sender: FDA-Public Use
  Company Number: US-BIOGENIDEC-2014BI006682

PATIENT
  Age: 58 Year
  Sex: Female

DRUGS (11)
  1. TYSABRI [Suspect]
     Indication: MULTIPLE SCLEROSIS
     Route: 042
     Dates: start: 20100324, end: 20131206
  2. SYNTHROID [Concomitant]
     Indication: HYPOTHYROIDISM
  3. METFORMIN [Concomitant]
     Indication: TYPE 2 DIABETES MELLITUS
  4. CALCITRIOL [Concomitant]
     Indication: HYPOPARATHYROIDISM
  5. ATORVASTATIN [Concomitant]
     Indication: HYPERLIPIDAEMIA
  6. DIOVAN [Concomitant]
     Indication: HYPERTENSION
  7. VALIUM [Concomitant]
  8. ADDERALL [Concomitant]
  9. ESCITALOPRAM [Concomitant]
  10. XANAX [Concomitant]
     Indication: ANXIETY
  11. XANAX [Concomitant]
     Indication: ATTENTION DEFICIT/HYPERACTIVITY DISORDER

REACTIONS (3)
  - Papillary thyroid cancer [Recovered/Resolved]
  - Chest pain [Recovered/Resolved]
  - Cholelithiasis [Not Recovered/Not Resolved]
